FAERS Safety Report 19175527 (Version 2)
Quarter: 2021Q2

REPORT INFORMATION
  Report Type: Spontaneous
  Country: US (occurrence: US)
  Receive Date: 20210423
  Receipt Date: 20210605
  Transmission Date: 20210717
  Serious: No
  Sender: FDA-Public Use
  Company Number: US-TAKEDA-2021TUS025320

PATIENT
  Sex: Female
  Weight: 51 kg

DRUGS (9)
  1. DEXILANT [Suspect]
     Active Substance: DEXLANSOPRAZOLE
     Indication: GASTROOESOPHAGEAL REFLUX DISEASE
     Dosage: 60 MILLIGRAM, QD
     Route: 065
  2. AMLODIPINE [Concomitant]
     Active Substance: AMLODIPINE BESYLATE
     Indication: HYPERTENSION
     Dosage: 10 MILLIGRAM, QD
     Route: 065
  3. DEXILANT [Suspect]
     Active Substance: DEXLANSOPRAZOLE
     Indication: HIATUS HERNIA
  4. PEPCID [Suspect]
     Active Substance: FAMOTIDINE
     Indication: GASTROOESOPHAGEAL REFLUX DISEASE
     Dosage: 20 MILLIGRAM, Q8HR
     Route: 065
  5. GAVISCON [ALUMINIUM HYDROXIDE;MAGNESIUM CARBONATE] [Concomitant]
     Indication: ORAL PAIN
     Dosage: UNK
     Route: 065
  6. PEPCID [Suspect]
     Active Substance: FAMOTIDINE
     Indication: HIATUS HERNIA
     Dosage: 20 MILLIGRAM, BID
     Route: 065
  7. AMLODIPINE [Concomitant]
     Active Substance: AMLODIPINE BESYLATE
     Indication: BLOOD PRESSURE ABNORMAL
  8. LISINOPRIL. [Concomitant]
     Active Substance: LISINOPRIL
     Indication: BLOOD PRESSURE ABNORMAL
     Dosage: 10 MILLIGRAM
     Route: 065
  9. LISINOPRIL. [Concomitant]
     Active Substance: LISINOPRIL
     Indication: HYPERTENSION
     Dosage: 40 MILLIGRAM, QD
     Route: 065

REACTIONS (11)
  - Tooth loss [Unknown]
  - Drug ineffective [Unknown]
  - Tooth erosion [Unknown]
  - Dry mouth [Unknown]
  - Arthritis [Unknown]
  - Oral discomfort [Unknown]
  - Sciatica [Unknown]
  - Incorrect product administration duration [Unknown]
  - Ear swelling [Unknown]
  - Extra dose administered [Unknown]
  - Ear discomfort [Unknown]
